FAERS Safety Report 5817685-5 (Version None)
Quarter: 2008Q3

REPORT INFORMATION
  Report Type: 
  Country: None (occurrence: None)
  Receive Date: 20080722
  Receipt Date: 20080710
  Transmission Date: 20090109
  Serious: Yes (Other)
  Sender: FDA-Public Use
  Company Number: US-ELI_LILLY_AND_COMPANY-US200807002980

PATIENT
  Sex: Female
  Weight: 66.667 kg

DRUGS (23)
  1. CYMBALTA [Suspect]
     Dosage: 60 MG, DAILY (1/D)
     Route: 048
     Dates: start: 20070101
  2. CYMBALTA [Suspect]
     Dosage: 30 MG, DAILY (1/D)
     Route: 048
     Dates: start: 20070101
  3. BYETTA [Concomitant]
     Dosage: 5 UG, 2/D
     Dates: start: 20050101, end: 20050101
  4. BYETTA [Concomitant]
     Dosage: 10 UG, 2/D
     Dates: start: 20050101, end: 20071001
  5. BYETTA [Concomitant]
     Dosage: 10 UG, 2/D
     Dates: start: 20080710
  6. PREDNISONE TAB [Concomitant]
     Dosage: 3 MG, 4/W
     Route: 048
  7. PREDNISONE TAB [Concomitant]
     Dosage: 4 MG, 4/W
  8. LORAZEPAM [Concomitant]
     Indication: ANXIETY
     Dosage: 1 MG, 3/D
  9. HYDROCODONE BITARTRATE [Concomitant]
     Indication: PAIN
     Dosage: 7.5 MG, AS NEEDED
  10. TRANDOLAPRIL [Concomitant]
     Indication: BLOOD PRESSURE
     Dosage: 4 MG, DAILY (1/D)
     Route: 048
  11. ACIPHEX [Concomitant]
     Dosage: 20 MG, DAILY (1/D)
     Route: 048
  12. LEVOXYL [Concomitant]
     Dosage: 50 UG, DAILY (1/D)
     Route: 048
  13. LEVOXYL [Concomitant]
     Dosage: 100 UG, WEEKLY (1/W)
  14. FUROSEMIDE [Concomitant]
     Dosage: 40 MG, DAILY (1/D)
     Route: 048
  15. VITAMIN D [Concomitant]
     Dosage: 1000 U, DAILY (1/D)
     Route: 048
  16. LIPITOR [Concomitant]
     Indication: BLOOD CHOLESTEROL
     Dosage: UNK, EACH EVENING
     Route: 048
  17. AMBIEN [Concomitant]
     Indication: INSOMNIA
     Dosage: 12.5 MG, EACH EVENING
  18. AMBIEN [Concomitant]
     Dosage: 6.25 MG, AS NEEDED
  19. ZETIA [Concomitant]
     Route: 048
     Dates: start: 20070101
  20. GLYBURIDE [Concomitant]
     Indication: TYPE 2 DIABETES MELLITUS
     Route: 048
     Dates: start: 20071001
  21. ANTI-DIABETICS [Concomitant]
     Indication: TYPE 2 DIABETES MELLITUS
     Route: 048
     Dates: start: 20080101, end: 20080709
  22. DOMPERIDONE [Concomitant]
     Indication: IMPAIRED GASTRIC EMPTYING
     Dosage: 10 MG, 4/D
     Dates: start: 20071001
  23. DOMPERIDONE [Concomitant]
     Dosage: 20 MG, 4/D

REACTIONS (5)
  - CONVULSION [None]
  - FEELING ABNORMAL [None]
  - HYPOGLYCAEMIC UNCONSCIOUSNESS [None]
  - ROAD TRAFFIC ACCIDENT [None]
  - VISUAL IMPAIRMENT [None]
